FAERS Safety Report 7530692-X (Version None)
Quarter: 2011Q2

REPORT INFORMATION
  Report Type: 
  Country: None (occurrence: None)
  Receive Date: 20110607
  Receipt Date: 20110523
  Transmission Date: 20111010
  Serious: Yes (Other)
  Sender: FDA-Public Use
  Company Number: FR-WATSON-2011-07350

PATIENT
  Age: 48 Year
  Sex: Male

DRUGS (3)
  1. BETAMETHASONE [Suspect]
     Indication: MUSCULOSKELETAL PAIN
     Dosage: UNK
     Route: 014
  2. PIROXICAM [Suspect]
     Indication: PRODUCT USED FOR UNKNOWN INDICATION
     Dosage: UNK
  3. KETOPROFEN [Suspect]
     Indication: PRODUCT USED FOR UNKNOWN INDICATION
     Dosage: UNK

REACTIONS (2)
  - DERMATITIS [None]
  - REACTION TO DRUG EXCIPIENTS [None]
